FAERS Safety Report 6386159-8 (Version None)
Quarter: 2009Q4

REPORT INFORMATION
  Report Type: 
  Country: None (occurrence: None)
  Receive Date: 20091002
  Receipt Date: 20081205
  Transmission Date: 20100525
  Serious: No
  Sender: FDA-Public Use
  Company Number: US-ASTRAZENECA-2008UW26068

PATIENT
  Age: 78 Year
  Sex: Female
  Weight: 66 kg

DRUGS (2)
  1. ARIMIDEX [Suspect]
     Indication: BREAST CANCER FEMALE
     Route: 048
     Dates: start: 20080601
  2. TYLENOL (CAPLET) [Concomitant]
     Dosage: AS NEEDED

REACTIONS (5)
  - BLOOD PRESSURE INCREASED [None]
  - OSTEOPENIA [None]
  - POSITRON EMISSION TOMOGRAM ABNORMAL [None]
  - PRURITUS [None]
  - WEIGHT INCREASED [None]
